FAERS Safety Report 8975352 (Version 1)
Quarter: 2012Q4

REPORT INFORMATION
  Report Type: 
  Country: BR (occurrence: BR)
  Receive Date: 20121219
  Receipt Date: 20121219
  Transmission Date: 20130627
  Serious: Yes (Other)
  Sender: FDA-Public Use
  Company Number: PHHY2012BR116140

PATIENT
  Sex: Male

DRUGS (2)
  1. DIOVAN [Suspect]
     Indication: BLOOD PRESSURE
     Dosage: 80 mg, QD
     Dates: end: 2011
  2. DIOVAN [Suspect]
     Dosage: 160 mg, UNK

REACTIONS (1)
  - Myocardial infarction [Not Recovered/Not Resolved]
